FAERS Safety Report 24776774 (Version 1)
Quarter: 2024Q4

REPORT INFORMATION
  Report Type: Spontaneous
  Country: FR (occurrence: FR)
  Receive Date: 20241226
  Receipt Date: 20241226
  Transmission Date: 20250115
  Serious: Yes (Hospitalization)
  Sender: ACCORD
  Company Number: None

PATIENT
  Age: 57 Year
  Sex: Female

DRUGS (3)
  1. OXALIPLATIN [Suspect]
     Active Substance: OXALIPLATIN
     Indication: Carcinoid tumour of the gastrointestinal tract
     Dosage: STRENGTH: 5 MG/ML, C1
     Dates: start: 20241017, end: 20241017
  2. LEVOLEUCOVORIN CALCIUM [Suspect]
     Active Substance: LEVOLEUCOVORIN CALCIUM
     Indication: Chemotherapy
     Dosage: STRENGTH: 10 MG/ML, C1
     Route: 042
     Dates: start: 20241017, end: 20241017
  3. IRINOTECAN [Suspect]
     Active Substance: IRINOTECAN
     Indication: Carcinoid tumour of the gastrointestinal tract
     Dosage: STRENGTH: 20 MG/ML, C1
     Dates: start: 20241017, end: 20241017

REACTIONS (3)
  - Hot flush [Recovered/Resolved]
  - Speech disorder [Recovered/Resolved]
  - Dysphagia [Recovered/Resolved]

NARRATIVE: CASE EVENT DATE: 20241017
